FAERS Safety Report 6011619-9 (Version None)
Quarter: 2008Q4

REPORT INFORMATION
  Report Type: 
  Country: None (occurrence: None)
  Receive Date: 20081218
  Receipt Date: 20081208
  Transmission Date: 20090506
  Serious: Yes (Hospitalization)
  Sender: FDA-Public Use
  Company Number: JP-EISAI MEDICAL RESEARCH-E2090-00597-SPO-JP

PATIENT
  Age: 31 Year
  Sex: Female

DRUGS (18)
  1. EXCEGRAN [Suspect]
     Indication: CONVULSION
     Route: 048
     Dates: start: 20060701, end: 20070108
  2. EXCEGRAN [Suspect]
     Route: 048
     Dates: start: 20070109, end: 20070111
  3. EXCEGRAN [Suspect]
     Route: 048
     Dates: start: 20070112, end: 20070117
  4. EXCEGRAN [Suspect]
     Route: 048
     Dates: start: 20070118, end: 20070121
  5. RISPERDAL [Suspect]
     Indication: SCHIZOPHRENIA
     Route: 048
     Dates: end: 20070104
  6. RISPERDAL [Suspect]
     Route: 048
     Dates: start: 20070105, end: 20070110
  7. RISPERDAL [Suspect]
     Route: 048
     Dates: start: 20070111, end: 20070115
  8. TEGRETOL [Suspect]
     Indication: ELECTROENCEPHALOGRAM ABNORMAL
     Route: 048
     Dates: end: 20070207
  9. TEGRETOL [Suspect]
     Route: 048
     Dates: start: 20070208, end: 20070218
  10. DIAMOX [Suspect]
     Indication: CONVULSION
     Route: 048
     Dates: start: 20060701, end: 20070101
  11. DIAMOX [Suspect]
     Route: 048
     Dates: start: 20070102, end: 20070102
  12. DIAMOX [Suspect]
     Route: 048
     Dates: start: 20070103, end: 20070103
  13. SERENACE [Suspect]
     Indication: SCHIZOPHRENIA
     Route: 048
     Dates: start: 20070109, end: 20070111
  14. SERENACE [Suspect]
     Route: 048
     Dates: start: 20070112, end: 20070115
  15. SERENACE [Suspect]
     Route: 048
     Dates: start: 20070116, end: 20070121
  16. SERENACE [Suspect]
     Route: 048
     Dates: start: 20070122
  17. SERENACE [Suspect]
     Route: 041
     Dates: start: 20070101, end: 20070108
  18. ANTI-PSYCHOTIC MEDICATION [Concomitant]

REACTIONS (1)
  - METABOLIC ENCEPHALOPATHY [None]
